FAERS Safety Report 25726536 (Version 2)
Quarter: 2025Q4

REPORT INFORMATION
  Report Type: Spontaneous
  Country: US (occurrence: US)
  Receive Date: 20250826
  Receipt Date: 20251124
  Transmission Date: 20260117
  Serious: No
  Sender: SANOFI AVENTIS
  Company Number: US-SA-2025SA251816

PATIENT
  Age: 56 Year
  Sex: Male

DRUGS (1)
  1. ALTUVIIIO [Suspect]
     Active Substance: EFANESOCTOCOG ALFA
     Dosage: 4000 U
     Route: 042

REACTIONS (3)
  - Post procedural haemorrhage [Recovered/Resolved]
  - Haemorrhage [Unknown]
  - Tooth extraction [Unknown]

NARRATIVE: CASE EVENT DATE: 20250812
